FAERS Safety Report 12607607 (Version 2)
Quarter: 2016Q3

REPORT INFORMATION
  Report Type: Spontaneous
  Country: US (occurrence: US)
  Receive Date: 20160729
  Receipt Date: 20160803
  Transmission Date: 20161109
  Serious: Yes (Hospitalization, Other)
  Sender: FDA-Public Use
  Company Number: US-CELGENEUS-USA-2016076055

PATIENT
  Sex: Male

DRUGS (1)
  1. OTEZLA [Suspect]
     Active Substance: APREMILAST
     Indication: PRODUCT USED FOR UNKNOWN INDICATION
     Dosage: 60 MILLIGRAM
     Route: 048
     Dates: start: 20160331

REACTIONS (12)
  - Heart rate decreased [Recovered/Resolved]
  - Frequent bowel movements [Recovered/Resolved]
  - Gastrointestinal pain [Recovered/Resolved]
  - Swelling face [Recovered/Resolved]
  - Insomnia [Recovered/Resolved]
  - Gastrointestinal sounds abnormal [Recovered/Resolved]
  - Sinus headache [Recovered/Resolved]
  - Fatigue [Recovered/Resolved]
  - Diabetes mellitus [Recovered/Resolved]
  - Diarrhoea [Recovered/Resolved]
  - Cellulitis [Recovered/Resolved]
  - Peripheral swelling [Recovered/Resolved]
